FAERS Safety Report 7464171-5 (Version None)
Quarter: 2011Q2

REPORT INFORMATION
  Report Type: 
  Country: None (occurrence: None)
  Receive Date: 20110506
  Receipt Date: 20110502
  Transmission Date: 20111010
  Serious: Yes (Disabling)
  Sender: FDA-Public Use
  Company Number: US-MERCK-1008USA04175

PATIENT
  Sex: Male

DRUGS (1)
  1. FOSAMAX [Suspect]
     Indication: OSTEOPOROSIS
     Route: 048
     Dates: start: 20020101, end: 20100101

REACTIONS (5)
  - UPPER LIMB FRACTURE [None]
  - LOWER LIMB FRACTURE [None]
  - WRIST FRACTURE [None]
  - HAND FRACTURE [None]
  - FRACTURE [None]
